FAERS Safety Report 14749930 (Version 6)
Quarter: 2020Q1

REPORT INFORMATION
  Report Type: Spontaneous
  Country: US (occurrence: US)
  Receive Date: 20180412
  Receipt Date: 20200121
  Transmission Date: 20200409
  Serious: No
  Sender: FDA-Public Use
  Company Number: US-TEVA-2018-US-879503

PATIENT
  Age: 90 Year
  Sex: Female

DRUGS (30)
  1. VITAMIN B12 [Concomitant]
     Active Substance: CYANOCOBALAMIN
  2. PROBIOTIC [Concomitant]
     Active Substance: PROBIOTICS NOS
  3. SELENIUM [Concomitant]
     Active Substance: SELENIUM
  4. MELATONIN [Concomitant]
     Active Substance: MELATONIN
  5. TRAZODONE [Concomitant]
     Active Substance: TRAZODONE HYDROCHLORIDE
  6. SYNRIBO [Suspect]
     Active Substance: OMACETAXINE MEPESUCCINATE
     Indication: CHRONIC MYELOID LEUKAEMIA
     Dosage: 4 MILLIGRAM DAILY; 2MG/0.57ML
     Route: 065
     Dates: start: 20171208, end: 20171222
  7. DHEA [Concomitant]
     Active Substance: PRASTERONE
  8. RIBOFLAVIN [Concomitant]
     Active Substance: RIBOFLAVIN
  9. METOPROLOL. [Concomitant]
     Active Substance: METOPROLOL
  10. UBIQUINOL [Concomitant]
     Active Substance: UBIQUINOL
  11. FERROUS SULFATE. [Concomitant]
     Active Substance: FERROUS SULFATE
     Route: 065
  12. MAGNESIUM [Concomitant]
     Active Substance: MAGNESIUM
  13. SYNRIBO [Suspect]
     Active Substance: OMACETAXINE MEPESUCCINATE
     Dosage: 2MG/0.57ML
     Route: 065
     Dates: start: 20190402
  14. VITAMIN D3 [Concomitant]
     Active Substance: CHOLECALCIFEROL
  15. ASPIRIN. [Concomitant]
     Active Substance: ASPIRIN
     Route: 065
  16. METHOCARBAM [Concomitant]
     Active Substance: METHOCARBAMOL
     Route: 065
  17. LASIX [Concomitant]
     Active Substance: FUROSEMIDE
     Route: 065
  18. ARMOUR THYROID [Concomitant]
     Active Substance: THYROID, PORCINE
  19. RESVERATROL [Concomitant]
     Active Substance: DIETARY SUPPLEMENT\RESVERATROL
  20. SYNRIBO [Suspect]
     Active Substance: OMACETAXINE MEPESUCCINATE
     Dosage: 2MG/0.57ML
     Route: 065
     Dates: start: 20191214
  21. VITAMIN C [Concomitant]
     Active Substance: ASCORBIC ACID
     Route: 065
  22. HYDROXYUREA. [Concomitant]
     Active Substance: HYDROXYUREA
     Route: 065
  23. DILANTIN [Concomitant]
     Active Substance: PHENYTOIN
     Route: 065
  24. VITAMIN E [Concomitant]
     Active Substance: .ALPHA.-TOCOPHEROL
  25. OMEGA 3 [Concomitant]
     Active Substance: OMEGA-3 FATTY ACIDS
  26. HOMOCYSTEINE. [Concomitant]
     Active Substance: HOMOCYSTEINE
  27. XARELTO [Concomitant]
     Active Substance: RIVAROXABAN
  28. LATANOPROST. [Concomitant]
     Active Substance: LATANOPROST
  29. ACETYLCYST [Concomitant]
  30. COLOSTRUM [Concomitant]
     Active Substance: DIETARY SUPPLEMENT

REACTIONS (3)
  - Alopecia [Recovering/Resolving]
  - White blood cell count decreased [Recovering/Resolving]
  - Muscular weakness [Not Recovered/Not Resolved]

NARRATIVE: CASE EVENT DATE: 20180118
